FAERS Safety Report 7643666-5 (Version None)
Quarter: 2011Q3

REPORT INFORMATION
  Report Type: 
  Country: None (occurrence: None)
  Receive Date: 20110729
  Receipt Date: 20110720
  Transmission Date: 20111222
  Serious: Yes (Other)
  Sender: FDA-Public Use
  Company Number: PHHY2011US65149

PATIENT

DRUGS (1)
  1. ZOMETA [Suspect]

REACTIONS (3)
  - PYREXIA [None]
  - INFLUENZA LIKE ILLNESS [None]
  - IRITIS [None]
